FAERS Safety Report 4307141-8 (Version None)
Quarter: 2004Q1

REPORT INFORMATION
  Report Type: 
  Country: None (occurrence: None)
  Receive Date: 20040225
  Receipt Date: 20040205
  Transmission Date: 20041129
  Serious: Yes (Death)
  Sender: FDA-Public Use
  Company Number: GBS040214405

PATIENT
  Age: 42 Year
  Sex: Female

DRUGS (10)
  1. FLUOXETINE [Suspect]
     Indication: DEPRESSION
     Dosage: 20 MG/DAY
     Dates: start: 20021001
  2. TRAMADOL [Concomitant]
  3. AMOXICILLIN [Concomitant]
  4. CO-CODAMOL [Concomitant]
  5. PARACETAMOL [Concomitant]
  6. NUBAIN [Concomitant]
  7. LACTULOSE [Concomitant]
  8. FYBOGEL(ISPAGHULA) [Concomitant]
  9. POWERGEL(KETOPROFEN) [Concomitant]
  10. IBUPROFEN [Concomitant]

REACTIONS (15)
  - BLOOD URINE [None]
  - CIRCULATORY COLLAPSE [None]
  - CONVULSION [None]
  - CONVULSIVE THRESHOLD LOWERED [None]
  - DRUG INTERACTION INHIBITION [None]
  - HEPATIC CONGESTION [None]
  - LARYNGEAL DISORDER [None]
  - PNEUMONIA ASPIRATION [None]
  - PULMONARY CONGESTION [None]
  - PULMONARY OEDEMA [None]
  - RENAL DISORDER [None]
  - RENAL INFARCT [None]
  - SPLENOMEGALY [None]
  - TRACHEAL DISORDER [None]
  - VOMITING [None]
